FAERS Safety Report 18914687 (Version 1)
Quarter: 2021Q1

REPORT INFORMATION
  Report Type: Spontaneous
  Country: AU (occurrence: AU)
  Receive Date: 20210218
  Receipt Date: 20210218
  Transmission Date: 20210420
  Serious: Yes (Hospitalization, Other)
  Sender: FDA-Public Use
  Company Number: AU-TEVA-2021-AU-1882332

PATIENT
  Age: 62 Year
  Sex: Male

DRUGS (9)
  1. PEMBROLIZUMAB. [Suspect]
     Active Substance: PEMBROLIZUMAB
     Indication: NON-SMALL CELL LUNG CANCER METASTATIC
     Dosage: COMPLETED 3?CYCLES OF SYSTEMIC THERAPY IN THE FORM OF 3 WEEKLY CARBOPLATIN, PEMETREXEDAND PEMBROL...
     Route: 065
  2. PEMBROLIZUMAB. [Suspect]
     Active Substance: PEMBROLIZUMAB
     Indication: NON-SMALL CELL LUNG CANCER STAGE IV
  3. ROSUVASTATIN. [Concomitant]
     Active Substance: ROSUVASTATIN
     Indication: PRODUCT USED FOR UNKNOWN INDICATION
     Route: 065
  4. PEMETREXED. [Suspect]
     Active Substance: PEMETREXED
     Indication: NON-SMALL CELL LUNG CANCER STAGE IV
  5. ASPIRIN. [Concomitant]
     Active Substance: ASPIRIN
     Indication: CORONARY ARTERY DISEASE
     Dosage: LOW DOSE ASPIRIN
     Route: 065
  6. TELMISARTAN. [Concomitant]
     Active Substance: TELMISARTAN
     Indication: PRODUCT USED FOR UNKNOWN INDICATION
     Route: 065
  7. PEMETREXED. [Suspect]
     Active Substance: PEMETREXED
     Indication: NON-SMALL CELL LUNG CANCER METASTATIC
     Dosage: COMPLETED 3?CYCLES OF SYSTEMIC THERAPY IN THE FORM OF 3 WEEKLY CARBOPLATIN, PEMETREXEDAND PEMBROL...
     Route: 065
  8. CARBOPLATIN. [Suspect]
     Active Substance: CARBOPLATIN
     Indication: NON-SMALL CELL LUNG CANCER METASTATIC
     Dosage: COMPLETED 3?CYCLES OF SYSTEMIC THERAPY IN THE FORM OF 3 WEEKLY CARBOPLATIN, PEMETREXEDAND PEMBROL...
     Route: 065
  9. CARBOPLATIN. [Suspect]
     Active Substance: CARBOPLATIN
     Indication: NON-SMALL CELL LUNG CANCER STAGE IV

REACTIONS (3)
  - Enteritis [Recovered/Resolved]
  - Intestinal perforation [Recovered/Resolved]
  - Small intestinal obstruction [Recovered/Resolved]
